FAERS Safety Report 4722800-0 (Version None)
Quarter: 2005Q3

REPORT INFORMATION
  Report Type: 
  Country: None (occurrence: None)
  Receive Date: 20050722
  Receipt Date: 20050608
  Transmission Date: 20060218
  Serious: Yes (Hospitalization, Other)
  Sender: FDA-Public Use
  Company Number: PHEH2005US06482

PATIENT
  Age: 25 Year
  Sex: Female

DRUGS (5)
  1. TRILEPTAL [Suspect]
     Indication: DEPRESSION
     Dosage: 150 MG, QID
     Route: 048
     Dates: start: 20050401, end: 20050101
  2. TRILEPTAL [Suspect]
     Dosage: 225 MG, QD
     Route: 048
     Dates: start: 20050101
  3. PROVIGIL [Concomitant]
     Dosage: 50 MG, QD
     Route: 048
     Dates: end: 20050601
  4. LUNESTA [Suspect]
     Indication: INSOMNIA
     Dosage: 1 MG, QD
     Route: 048
     Dates: start: 20050614, end: 20050627
  5. NALTREXONE HYDROCHLORIDE [Suspect]
     Indication: SUICIDAL IDEATION
     Dosage: 25 MG, QD
     Dates: start: 20050615, end: 20050627

REACTIONS (9)
  - BIPOLAR DISORDER [None]
  - CONDITION AGGRAVATED [None]
  - DEPRESSION [None]
  - DRUG INTERACTION [None]
  - INTENTIONAL SELF-INJURY [None]
  - MYALGIA [None]
  - SOMNOLENCE [None]
  - SUICIDAL IDEATION [None]
  - UNRESPONSIVE TO PAIN STIMULI [None]
